FAERS Safety Report 9605208 (Version 1)
Quarter: 2013Q4

REPORT INFORMATION
  Report Type: Spontaneous
  Country: GB (occurrence: GB)
  Receive Date: 20131008
  Receipt Date: 20131008
  Transmission Date: 20140711
  Serious: Yes (Other)
  Sender: FDA-Public Use
  Company Number: ALCN2013GB005034

PATIENT
  Sex: 0

DRUGS (2)
  1. IOPIDINE [Suspect]
     Indication: GLAUCOMA
     Dosage: UNK
     Route: 047
     Dates: start: 201011
  2. DIAMOX                                  /CAN/ [Concomitant]
     Indication: GLAUCOMA
     Dosage: UNK
     Dates: start: 201011

REACTIONS (6)
  - Swelling face [Unknown]
  - Visual impairment [Unknown]
  - Eye pain [Unknown]
  - Eye swelling [Unknown]
  - Lacrimation increased [Unknown]
  - Ocular hyperaemia [Unknown]
